FAERS Safety Report 14213083 (Version 2)
Quarter: 2018Q1

REPORT INFORMATION
  Report Type: Spontaneous
  Country: JP (occurrence: JP)
  Receive Date: 20171122
  Receipt Date: 20180117
  Transmission Date: 20180508
  Serious: Yes (Hospitalization, Other)
  Sender: FDA-Public Use
  Company Number: JP-GLAXOSMITHKLINE-JP2017JPN177095

PATIENT
  Age: 77 Year
  Sex: Male
  Weight: 31 kg

DRUGS (5)
  1. SERETIDE [Suspect]
     Active Substance: FLUTICASONE PROPIONATE\SALMETEROL XINAFOATE
     Indication: ASTHMA
     Dosage: 125 ?G, BID
     Route: 055
     Dates: end: 20171122
  2. AMBROXOL HYDROCHLORIDE [Concomitant]
     Active Substance: AMBROXOL HYDROCHLORIDE
     Dosage: 45 MG, QD
  3. SERETIDE [Suspect]
     Active Substance: FLUTICASONE PROPIONATE\SALMETEROL XINAFOATE
     Dosage: 125 UG, UNK
     Route: 055
     Dates: end: 201711
  4. THEODUR TABLETS [Concomitant]
     Dosage: 200 MG, BID
  5. TULOBUTEROL [Concomitant]
     Active Substance: TULOBUTEROL
     Dosage: 2 MG, QD

REACTIONS (6)
  - Decreased appetite [Unknown]
  - Intentional product misuse [Unknown]
  - Dyspnoea [Recovering/Resolving]
  - Intentional overdose [Unknown]
  - Bronchitis bacterial [Recovered/Resolved]
  - Tachypnoea [Recovering/Resolving]

NARRATIVE: CASE EVENT DATE: 20171115
